FAERS Safety Report 5683187-2 (Version None)
Quarter: 2008Q1

REPORT INFORMATION
  Report Type: 
  Country: None (occurrence: None)
  Receive Date: 20080327
  Receipt Date: 20080321
  Transmission Date: 20080703
  Serious: Yes (Hospitalization)
  Sender: FDA-Public Use
  Company Number: HU-BOEHRINGER INGELHEIM GMBH, GERMANY-2008-BP-03997YA

PATIENT
  Sex: Male
  Weight: 102 kg

DRUGS (2)
  1. TAMSULOSIN OCAS [Suspect]
     Indication: PROSTATISM
     Route: 048
     Dates: end: 20080309
  2. SOLIFENACIN (TAMSULOSIN REFERENCE) [Suspect]
     Indication: PROSTATISM
     Route: 048
     Dates: end: 20080309

REACTIONS (2)
  - DRY MOUTH [None]
  - OVERDOSE [None]
